FAERS Safety Report 20679647 (Version 1)
Quarter: 2022Q2

REPORT INFORMATION
  Report Type: Spontaneous
  Country: US (occurrence: None)
  Receive Date: 20220405
  Receipt Date: 20220405
  Transmission Date: 20220721
  Serious: Yes (Hospitalization)
  Sender: FDA-Public Use
  Company Number: None

PATIENT
  Age: 60 Year
  Sex: Female
  Weight: 72 kg

DRUGS (14)
  1. .DELTA.8-TETRAHYDROCANNABINOL\CANNABIDIOL\HERBALS [Suspect]
     Active Substance: .DELTA.8-TETRAHYDROCANNABINOL\CANNABIDIOL\HERBALS
     Indication: Immune system disorder
     Route: 048
     Dates: start: 20220222, end: 20220222
  2. SUPPLEMENTS BOOST IMMUNE [Concomitant]
  3. VALIUM [Concomitant]
     Active Substance: DIAZEPAM
  4. ALBUTEROL [Concomitant]
     Active Substance: ALBUTEROL
  5. VITAMIN D3 [Concomitant]
     Active Substance: CHOLECALCIFEROL
  6. VITAMIN B COMPLEX [Concomitant]
     Active Substance: CYANOCOBALAMIN\DEXPANTHENOL\NIACINAMIDE\PYRIDOXINE HYDROCHLORIDE\RIBOFLAVIN 5^-PHOSPHATE SODIUM\THIA
  7. VITAMIN C [Concomitant]
     Active Substance: ASCORBIC ACID
  8. CANNABIDIOL\HERBALS [Concomitant]
     Active Substance: CANNABIDIOL\HERBALS
  9. FISH OIL [Concomitant]
     Active Substance: FISH OIL
  10. LYSINE [Concomitant]
     Active Substance: LYSINE
  11. ZINC [Concomitant]
     Active Substance: ZINC
  12. PROBIOTICS NOS [Concomitant]
     Active Substance: PROBIOTICS NOS
  13. ECHINACEA [Concomitant]
     Active Substance: ECHINACEA, UNSPECIFIED
  14. HERBALS\HOMEOPATHICS\GOLDENSEAL [Concomitant]
     Active Substance: HERBALS\HOMEOPATHICS\GOLDENSEAL

REACTIONS (8)
  - Feeling abnormal [None]
  - Mobility decreased [None]
  - Paralysis [None]
  - Heart rate increased [None]
  - Eye disorder [None]
  - Near death experience [None]
  - Fear [None]
  - Blood test abnormal [None]

NARRATIVE: CASE EVENT DATE: 20220222
